FAERS Safety Report 13934915 (Version 1)
Quarter: 2017Q3

REPORT INFORMATION
  Report Type: Spontaneous
  Country: US (occurrence: None)
  Receive Date: 20170901
  Receipt Date: 20170901
  Transmission Date: 20171127
  Serious: Yes (Hospitalization)
  Sender: FDA-Public Use
  Company Number: None

PATIENT
  Age: 89 Year
  Sex: Male

DRUGS (1)
  1. LINEZOLID. [Suspect]
     Active Substance: LINEZOLID
     Dates: start: 20170806

REACTIONS (7)
  - Product substitution issue [None]
  - Diarrhoea [None]
  - Arthralgia [None]
  - Toxicity to various agents [None]
  - Haematuria [None]
  - Thrombocytopenia [None]
  - Arthritis infective [None]

NARRATIVE: CASE EVENT DATE: 20170826
